FAERS Safety Report 12231328 (Version 2)
Quarter: 2016Q2

REPORT INFORMATION
  Report Type: Spontaneous
  Country: JP (occurrence: JP)
  Receive Date: 20160401
  Receipt Date: 20160411
  Transmission Date: 20160815
  Serious: No
  Sender: FDA-Public Use
  Company Number: JP-JT-EVA201600643KERYXP-001

PATIENT
  Age: 55 Year
  Sex: Female

DRUGS (18)
  1. GLUCOSE [Concomitant]
     Active Substance: DEXTROSE
     Dosage: 20 %, UNK
     Route: 010
     Dates: start: 20120703
  2. TRAZENTA [Concomitant]
     Active Substance: LINAGLIPTIN
     Dosage: 5 G, QD
     Route: 048
     Dates: start: 20140528
  3. ACTONEL [Concomitant]
     Active Substance: RISEDRONATE SODIUM
     Dosage: 17.5 MG, QD
     Route: 048
     Dates: start: 20160314
  4. SENNA [Concomitant]
     Active Substance: SENNA LEAF\SENNOSIDES\SENNOSIDES A AND B
     Dosage: 1 G, QD
     Route: 048
     Dates: start: 20090427
  5. TANKARU [Concomitant]
     Dosage: 1000 MG, QD
     Route: 048
     Dates: start: 20100410
  6. NIFEDIPINE. [Concomitant]
     Active Substance: NIFEDIPINE
     Dosage: 40 G, UNK
     Route: 048
     Dates: start: 20140327
  7. BAYASPIRIN [Concomitant]
     Active Substance: ASPIRIN
     Dosage: 100 G, QD
     Route: 048
     Dates: start: 20100301
  8. FESIN                              /00023550/ [Concomitant]
     Active Substance: IRON SUCROSE
     Dosage: 80 MG, UNK
     Route: 010
     Dates: start: 20120703
  9. ROCALTROL [Concomitant]
     Active Substance: CALCITRIOL
     Dosage: 0.5 MICROGRAM, QD
     Route: 048
     Dates: start: 20130516
  10. RIONA [Suspect]
     Active Substance: FERRIC CITRATE ANHYDROUS
     Indication: HYPERPHOSPHATAEMIA
     Dosage: 1000 MG, QD
     Route: 048
     Dates: start: 20151018, end: 20160319
  11. LEVOCARNITINE. [Concomitant]
     Active Substance: LEVOCARNITINE
     Dosage: 1000 MG, UNK
     Route: 010
     Dates: start: 20140704
  12. SENNARIDE [Concomitant]
     Active Substance: SENNOSIDES A AND B
     Dosage: 24 G, QD
     Route: 048
     Dates: start: 20160314
  13. PARIET [Concomitant]
     Active Substance: RABEPRAZOLE SODIUM
     Dosage: 10 G, QD
     Route: 048
     Dates: end: 20160319
  14. LOWHEPA [Concomitant]
     Dosage: 150 IU, UNK
     Route: 010
     Dates: start: 20120703
  15. VOLTAREN [Concomitant]
     Active Substance: DICLOFENAC SODIUM
     Dosage: 75 G, QD
     Route: 048
     Dates: start: 20160314
  16. NESP [Concomitant]
     Active Substance: DARBEPOETIN ALFA
     Dosage: 40 MICROGRAM, UNK
     Route: 010
     Dates: start: 20140401
  17. KAYEXALATE [Concomitant]
     Active Substance: SODIUM POLYSTYRENE SULFONATE
     Indication: HYPERKALAEMIA
     Dosage: 6.54 G, UNK
     Route: 048
     Dates: start: 20150704, end: 20160319
  18. HYALURONATE NA [Concomitant]
     Dosage: 25 MG, UNK
     Route: 014
     Dates: start: 20160314

REACTIONS (2)
  - Thrombocytopenia [Not Recovered/Not Resolved]
  - White blood cell count decreased [Unknown]
